FAERS Safety Report 5123556-2 (Version None)
Quarter: 2006Q3

REPORT INFORMATION
  Report Type: 
  Country: None (occurrence: None)
  Receive Date: 20060801
  Receipt Date: 20060222
  Transmission Date: 20061208
  Serious: Yes (Death)
  Sender: FDA-Public Use
  Company Number: 2006003013

PATIENT
  Age: 70 Year
  Sex: Male
  Weight: 73.0291 kg

DRUGS (8)
  1. CAMPTOSAR [Suspect]
     Indication: OESOPHAGEAL CARCINOMA
     Dosage: (125 MG/M2
     Dates: start: 20051028, end: 20051209
  2. MITOMYCIN [Suspect]
     Indication: OESOPHAGEAL CARCINOMA
     Dosage: MITOMYCIN C (3 MG/M2,MITOMYCIN)
     Dates: start: 20051027, end: 20051208
  3. PROSCAR [Concomitant]
  4. ATROPINE [Concomitant]
  5. DEXAMETHASONE TAB [Concomitant]
  6. ONDANSETRON [Concomitant]
  7. LOPERAMIDE HCL [Concomitant]
  8. APREPITANT (APREPITANT) [Concomitant]

REACTIONS (14)
  - BLOOD BILIRUBIN INCREASED [None]
  - BLOOD CREATININE INCREASED [None]
  - DEHYDRATION [None]
  - DIARRHOEA [None]
  - DISEASE PROGRESSION [None]
  - FEELING ABNORMAL [None]
  - HYPOTENSION [None]
  - METABOLIC ACIDOSIS [None]
  - NAUSEA [None]
  - NEUTROPHIL COUNT DECREASED [None]
  - OESOPHAGEAL CARCINOMA [None]
  - PLATELET COUNT DECREASED [None]
  - VOMITING [None]
  - WHITE BLOOD CELL COUNT DECREASED [None]
